FAERS Safety Report 6216679-8 (Version None)
Quarter: 2009Q2

REPORT INFORMATION
  Report Type: 
  Country: None (occurrence: None)
  Receive Date: 20090605
  Receipt Date: 20090602
  Transmission Date: 20091009
  Serious: Yes (Death, Hospitalization)
  Sender: FDA-Public Use
  Company Number: DE-CELGENEUS-062-C5013-09042483

PATIENT
  Sex: Male
  Weight: 85.5 kg

DRUGS (2)
  1. CC-5013 [Suspect]
     Route: 048
     Dates: start: 20090414
  2. ALLOPURINOL [Concomitant]
     Indication: PROPHYLAXIS
     Route: 048
     Dates: start: 20090411

REACTIONS (2)
  - PNEUMONIA [None]
  - SEPSIS [None]
